FAERS Safety Report 4915836-8 (Version None)
Quarter: 2006Q1

REPORT INFORMATION
  Report Type: 
  Country: None (occurrence: None)
  Receive Date: 20060214
  Receipt Date: 20060207
  Transmission Date: 20060701
  Serious: Yes (Other)
  Sender: FDA-Public Use
  Company Number: S05-USA-05242-01

PATIENT
  Sex: Female

DRUGS (3)
  1. THYROID TAB [Suspect]
     Indication: AUTOIMMUNE THYROIDITIS
     Dosage: 60 MG QD PO
     Route: 048
     Dates: start: 20051015, end: 20060109
  2. THYROID TAB [Suspect]
     Indication: AUTOIMMUNE THYROIDITIS
     Dosage: 45 MG QD PO
     Route: 048
     Dates: start: 20060110
  3. IRON SUPPLEMENT [Concomitant]

REACTIONS (7)
  - FATIGUE [None]
  - HEART RATE INCREASED [None]
  - LUPUS-LIKE SYNDROME [None]
  - MUSCLE SPASMS [None]
  - RASH [None]
  - SWELLING [None]
  - THYROID DISORDER [None]
